FAERS Safety Report 11483158 (Version 1)
Quarter: 2015Q3

REPORT INFORMATION
  Report Type: Spontaneous
  Country: SE (occurrence: None)
  Receive Date: 20150908
  Receipt Date: 20150908
  Transmission Date: 20151125
  Serious: No
  Sender: FDA-Public Use
  Company Number: 1509SWE001055

PATIENT
  Sex: Male
  Weight: 10 kg

DRUGS (1)
  1. CEDAX [Suspect]
     Active Substance: CEFTIBUTEN DIHYDRATE
     Indication: URINARY TRACT INFECTION
     Dosage: CEDAX 36 MG/ML POWDER FOR ORAL SUSPENSION

REACTIONS (4)
  - Vomiting [None]
  - Cold sweat [None]
  - Dermatitis diaper [None]
  - Nausea [None]
